FAERS Safety Report 8095529-1 (Version None)
Quarter: 2012Q1

REPORT INFORMATION
  Report Type: 
  Country: None (occurrence: None)
  Receive Date: 20120129
  Receipt Date: 20111216
  Transmission Date: 20120608
  Serious: No
  Sender: FDA-Public Use
  Company Number: US-ABBOTT-11P-163-0884359-00

PATIENT
  Age: 37 Year
  Sex: Male

DRUGS (4)
  1. HUMIRA [Suspect]
     Indication: PSORIATIC ARTHROPATHY
     Dates: start: 20111215
  2. VICTOZA [Concomitant]
     Indication: DIABETES MELLITUS
     Route: 048
  3. PRANDIN [Concomitant]
     Indication: DIABETES MELLITUS
     Dosage: BY MOUTH DAILY
     Route: 048
  4. METFORMIN HCL [Concomitant]
     Indication: PRODUCT USED FOR UNKNOWN INDICATION
     Dosage: BY MOUTH DAILY
     Route: 048

REACTIONS (3)
  - OEDEMA PERIPHERAL [None]
  - CONDITION AGGRAVATED [None]
  - PARAESTHESIA [None]
